FAERS Safety Report 10064139 (Version 1)
Quarter: 2014Q2

REPORT INFORMATION
  Report Type: Spontaneous
  Country: DE (occurrence: DE)
  Receive Date: 20140408
  Receipt Date: 20140408
  Transmission Date: 20141212
  Serious: Yes (Congenital Anomaly)
  Sender: FDA-Public Use
  Company Number: DE-MERCK-1404DEU001129

PATIENT
  Age: 1 Day
  Sex: Female
  Weight: 3.9 kg

DRUGS (6)
  1. SINGULAIR 10 MG FILMTABLETTEN [Suspect]
     Indication: ASTHMA
     Dosage: 10 MG, QD
     Route: 064
     Dates: start: 20120505, end: 20130201
  2. VENLAFAXINE HYDROCHLORIDE [Suspect]
     Indication: DEPRESSION
     Dosage: 150 MG, QD(VARYING DOSES)
     Route: 064
     Dates: start: 20120505
  3. SYMBICORT [Concomitant]
     Indication: ASTHMA
     Dosage: UNK
     Route: 064
     Dates: start: 20120505, end: 20130201
  4. BEROTEC [Concomitant]
     Indication: ASTHMA
     Dosage: ON DEMAND
     Route: 064
     Dates: start: 20120505, end: 20130201
  5. LEVOTHYROXINE SODIUM [Concomitant]
     Indication: HYPOTHYROIDISM
     Dosage: 62.5 MICROGRAM, QD
     Route: 064
     Dates: start: 20120505, end: 20130214
  6. FOLIC ACID [Concomitant]
     Indication: PROPHYLAXIS OF NEURAL TUBE DEFECT
     Dosage: 0.4 MG, QD
     Route: 064
     Dates: start: 20120505, end: 20130214

REACTIONS (1)
  - Congenital naevus [Not Recovered/Not Resolved]
